FAERS Safety Report 26013771 (Version 1)
Quarter: 2025Q4

REPORT INFORMATION
  Report Type: Spontaneous
  Country: US (occurrence: US)
  Receive Date: 20251107
  Receipt Date: 20251107
  Transmission Date: 20260118
  Serious: Yes (Other)
  Sender: AMPHASTAR
  Company Number: US-Amphastar Pharmaceuticals, Inc.-2188123

PATIENT
  Age: 68 Year
  Sex: Female
  Weight: 72.727 kg

DRUGS (1)
  1. BAQSIMI [Suspect]
     Active Substance: GLUCAGON
     Indication: Blood glucose decreased
     Dates: start: 20251027, end: 20251027

REACTIONS (5)
  - Drug ineffective [Recovered/Resolved]
  - Ocular hyperaemia [Not Recovered/Not Resolved]
  - Administration site pain [Not Recovered/Not Resolved]
  - Eye inflammation [Not Recovered/Not Resolved]
  - Eye irritation [Not Recovered/Not Resolved]

NARRATIVE: CASE EVENT DATE: 20251027
